FAERS Safety Report 7242325-0 (Version None)
Quarter: 2011Q1

REPORT INFORMATION
  Report Type: 
  Country: None (occurrence: None)
  Receive Date: 20110125
  Receipt Date: 20110118
  Transmission Date: 20110831
  Serious: Yes (Other)
  Sender: FDA-Public Use
  Company Number: FR-BIOGENIDEC-2011BI000789

PATIENT
  Age: 58 Year
  Sex: Male

DRUGS (4)
  1. LISINOPRIL [Concomitant]
     Indication: CARDIOVASCULAR DISORDER
  2. CELIPROLOL [Concomitant]
     Indication: CARDIOVASCULAR DISORDER
  3. KARDEGIC [Concomitant]
     Indication: CARDIOVASCULAR DISORDER
  4. TYSABRI [Suspect]
     Indication: MULTIPLE SCLEROSIS
     Route: 042
     Dates: start: 20100204

REACTIONS (1)
  - CHRONIC MYELOID LEUKAEMIA [None]
